FAERS Safety Report 5208699-7 (Version None)
Quarter: 2007Q1

REPORT INFORMATION
  Report Type: 
  Country: None (occurrence: None)
  Receive Date: 20070116
  Receipt Date: 20070105
  Transmission Date: 20070707
  Serious: Yes (Disabling)
  Sender: FDA-Public Use
  Company Number: PHRM2007FR00473

PATIENT
  Age: 58 Year
  Sex: Male
  Weight: 75 kg

DRUGS (9)
  1. ZOMETA [Suspect]
     Indication: MULTIPLE MYELOMA
     Dosage: 4 MG, QMO
     Dates: start: 20030515, end: 20060804
  2. AREDIA [Suspect]
     Indication: MULTIPLE MYELOMA
     Dosage: 90 MG, QMO
     Dates: start: 20020405, end: 20030417
  3. CLASTOBAN [Suspect]
     Dosage: 1600 MG PER DAY
     Route: 048
     Dates: start: 19990323, end: 20020315
  4. MAG 2 [Concomitant]
  5. DECTANCYL [Concomitant]
     Route: 048
  6. THALIDOMIDE [Concomitant]
  7. STILNOX /SCH/ [Concomitant]
  8. GLIMEPIRIDE [Concomitant]
  9. ALLOPURINOL SODIUM [Concomitant]

REACTIONS (8)
  - ABSCESS MANAGEMENT [None]
  - GINGIVAL HYPERPLASIA [None]
  - INFECTION [None]
  - OSTEONECROSIS [None]
  - SINUSITIS [None]
  - SURGERY [None]
  - TOOTH DISORDER [None]
  - TOOTH EXTRACTION [None]
